FAERS Safety Report 24972554 (Version 1)
Quarter: 2025Q1

REPORT INFORMATION
  Report Type: Report from Study
  Country: US (occurrence: US)
  Receive Date: 20250215
  Receipt Date: 20250215
  Transmission Date: 20250409
  Serious: Yes (Other)
  Sender: AMNEAL
  Company Number: US-AMNEAL PHARMACEUTICALS-2025-AMRX-00488

PATIENT
  Age: 78 Year
  Sex: Female
  Weight: 45.533 kg

DRUGS (21)
  1. CARBIDOPA\LEVODOPA [Suspect]
     Active Substance: CARBIDOPA\LEVODOPA
     Indication: Parkinson^s disease
     Route: 048
  2. CARBIDOPA\LEVODOPA [Suspect]
     Active Substance: CARBIDOPA\LEVODOPA
     Dosage: 36.25/145 MG TAKE 2 CAPSULES BY 4 TIMES A DAY AT 8AM, 12PM, 4 PM AND 8PM
     Route: 048
     Dates: start: 20230209
  3. CARBIDOPA\LEVODOPA [Suspect]
     Active Substance: CARBIDOPA\LEVODOPA
     Route: 048
  4. CARBIDOPA\LEVODOPA [Suspect]
     Active Substance: CARBIDOPA\LEVODOPA
     Route: 048
  5. CARBIDOPA\LEVODOPA [Suspect]
     Active Substance: CARBIDOPA\LEVODOPA
     Dosage: 2 CAPSULES (36.25/145 MG), 4 /DAY
  6. SINEMET [Concomitant]
     Active Substance: CARBIDOPA\LEVODOPA
     Indication: Product used for unknown indication
     Route: 065
  7. AMLODIPINE BESYLATE [Concomitant]
     Active Substance: AMLODIPINE BESYLATE
     Indication: Product used for unknown indication
     Dosage: 10 MG TAB SIG: 1 TABLET ORALLY DAILY
     Route: 048
  8. CAPTOPRIL [Concomitant]
     Active Substance: CAPTOPRIL
     Indication: Blood pressure systolic increased
     Route: 048
  9. CLOTRIMAZOLE [Concomitant]
     Active Substance: CLOTRIMAZOLE
     Indication: Product used for unknown indication
     Dosage: 1% SOLUTION SIG: APPLY TO THE AFFECTED AND SURROUNDING AREAS OF SKIN TOPICALLY 2 TIMES PER DAY IN TH
     Route: 061
  10. DONEPEZIL [Concomitant]
     Active Substance: DONEPEZIL
     Indication: Dementia
     Dosage: 10 MG TABLET SIG: TAKE ONE (1) TABLET(S) BY MOUTH EVERY DAY.
     Route: 048
  11. FLUDROCORTISONE ACETATE [Concomitant]
     Active Substance: FLUDROCORTISONE ACETATE
     Indication: Orthostatic hypotension
     Dosage: 0.1 MG TAB, 3 TABLETS, MORNING
     Route: 048
  12. HYDRALAZINE [Concomitant]
     Active Substance: HYDRALAZINE HYDROCHLORIDE
     Indication: Product used for unknown indication
     Dosage: 10 MG TAB SIG: TAKE 1 TABLET TWICE DAILY
     Route: 065
  13. ACETAMINOPHEN\HYDROCODONE [Concomitant]
     Active Substance: ACETAMINOPHEN\HYDROCODONE
     Indication: Product used for unknown indication
     Dosage: 7.5/325 MG, 1 TABLETS, EVERY 6HR (AS NEEDED)
     Route: 048
  14. NUPLAZID [Concomitant]
     Active Substance: PIMAVANSERIN TARTRATE
     Indication: Hallucination, visual
     Dosage: 34 MG CAPSULE SIG: TAKE 1 CAPSULE BY MOUTH DAILY
     Route: 048
  15. ONDANSETRON [Concomitant]
     Active Substance: ONDANSETRON
     Indication: Nausea
     Route: 048
  16. ONDANSETRON [Concomitant]
     Active Substance: ONDANSETRON
     Indication: Vomiting
  17. QUETIAPINE FUMARATE [Concomitant]
     Active Substance: QUETIAPINE FUMARATE
     Indication: Hallucination, visual
     Dosage: 100 MG TAB SIG: PLEASE TAKE 1 TABLET AT BEDTIME
     Route: 065
  18. TRAZODONE [Concomitant]
     Active Substance: TRAZODONE HYDROCHLORIDE
     Indication: Product used for unknown indication
     Dosage: 50 MG TAB SIG: TAKE 1/2-1 TAB QHS PM
     Route: 065
  19. TRIMETHOPRIM [Concomitant]
     Active Substance: TRIMETHOPRIM
     Indication: Product used for unknown indication
     Dosage: 100 MG TAB SIG: TAKE ONE (1) TABLET(S) BY MOUTH ONCE A DAY
     Route: 048
  20. VIIBRYD [Concomitant]
     Active Substance: VILAZODONE HYDROCHLORIDE
     Indication: Depression
     Route: 048
  21. TYLENOL [Concomitant]
     Active Substance: ACETAMINOPHEN
     Indication: Product used for unknown indication
     Dosage: 1 TABLETS (500 MG, EVERY 6HR (AS NEEDED)
     Route: 048

REACTIONS (7)
  - Hip fracture [Unknown]
  - Fall [Unknown]
  - Hallucination [Unknown]
  - Dysphonia [Unknown]
  - Bradykinesia [Unknown]
  - Overdose [Unknown]
  - Dyskinesia [Unknown]

NARRATIVE: CASE EVENT DATE: 20240822
